FAERS Safety Report 8352352-8 (Version None)
Quarter: 2012Q2

REPORT INFORMATION
  Report Type: 
  Country: None (occurrence: None)
  Receive Date: 20120511
  Receipt Date: 20120504
  Transmission Date: 20120825
  Serious: Yes (Other)
  Sender: FDA-Public Use
  Company Number: US-PFIZER INC-2012110388

PATIENT
  Age: 48 Year
  Sex: Male
  Weight: 97.506 kg

DRUGS (4)
  1. VIAGRA [Suspect]
     Dosage: 5 MG, 3X/DAY FOR 8 DAYS WITH ONE DAY OFF
  2. INSULIN [Concomitant]
     Dosage: UNK
  3. HEROIN [Concomitant]
     Dosage: UNK
  4. VIAGRA [Suspect]
     Dosage: 1000 MG, UNK
     Route: 048

REACTIONS (6)
  - TREMOR [None]
  - EXPIRED DRUG ADMINISTERED [None]
  - IRRITABILITY [None]
  - DISCOMFORT [None]
  - PENIS DISORDER [None]
  - FEELING ABNORMAL [None]
